FAERS Safety Report 12183688 (Version 1)
Quarter: 2016Q1

REPORT INFORMATION
  Report Type: Spontaneous
  Country: US (occurrence: None)
  Receive Date: 20160315
  Receipt Date: 20160315
  Transmission Date: 20160526
  Serious: Yes (Hospitalization)
  Sender: FDA-Public Use
  Company Number: None

PATIENT
  Age: 73 Year
  Sex: Female
  Weight: 74.84 kg

DRUGS (9)
  1. AMIODARONE 200 MG [Suspect]
     Active Substance: AMIODARONE
     Indication: CARDIOVERSION
     Dosage: 2 TABLETS
     Route: 048
     Dates: start: 20160310, end: 20160311
  2. METOPROLOL TARTRATE. [Concomitant]
     Active Substance: METOPROLOL TARTRATE
  3. FUROSEMIDE. [Concomitant]
     Active Substance: FUROSEMIDE
  4. ESTROPIPTATE [Concomitant]
  5. LEVOTHYROXINE. [Concomitant]
     Active Substance: LEVOTHYROXINE
  6. XARELTO [Concomitant]
     Active Substance: RIVAROXABAN
  7. AMIODARONE 200 MG [Suspect]
     Active Substance: AMIODARONE
     Indication: ATRIAL FIBRILLATION
     Dosage: 2 TABLETS
     Route: 048
     Dates: start: 20160310, end: 20160311
  8. CRESTOR [Concomitant]
     Active Substance: ROSUVASTATIN CALCIUM
  9. ASPIRIN. [Concomitant]
     Active Substance: ASPIRIN

REACTIONS (6)
  - Aspartate aminotransferase increased [None]
  - Blood thyroid stimulating hormone increased [None]
  - Blood albumin decreased [None]
  - Prothrombin time prolonged [None]
  - Pulmonary toxicity [None]
  - Alanine aminotransferase increased [None]

NARRATIVE: CASE EVENT DATE: 20160312
